FAERS Safety Report 6579856-2 (Version None)
Quarter: 2010Q1

REPORT INFORMATION
  Report Type: 
  Country: None (occurrence: None)
  Receive Date: 20100212
  Receipt Date: 20100203
  Transmission Date: 20100710
  Serious: Yes (Other)
  Sender: FDA-Public Use
  Company Number: JP-EISAI INC.-E3810-03503-SPO-JP

PATIENT
  Age: 74 Year
  Sex: Male

DRUGS (4)
  1. PARIET (RABEPRAZOLE) [Suspect]
     Route: 048
     Dates: start: 20080731
  2. ASPIRIN [Concomitant]
     Indication: THROMBOSIS PROPHYLAXIS
     Route: 048
     Dates: start: 20080731
  3. PANALDINE [Concomitant]
     Indication: THROMBOSIS PROPHYLAXIS
     Route: 048
     Dates: start: 20080731, end: 20080812
  4. PLAVIX [Concomitant]
     Indication: THROMBOSIS PROPHYLAXIS
     Route: 048
     Dates: start: 20080813

REACTIONS (1)
  - ARTERIOGRAM CORONARY [None]
